FAERS Safety Report 5094302-6 (Version None)
Quarter: 2006Q3

REPORT INFORMATION
  Report Type: 
  Country: None (occurrence: None)
  Receive Date: 20060830
  Receipt Date: 20060830
  Transmission Date: 20061208
  Serious: Yes (Death)
  Sender: FDA-Public Use
  Company Number: None

PATIENT
  Age: 65 Year
  Sex: Female
  Weight: 180 kg

DRUGS (18)
  1. LOVENOX [Suspect]
     Indication: ATRIAL FIBRILLATION
     Dosage: 100 MG Q 12 H SQ
     Route: 058
     Dates: start: 20060425, end: 20060501
  2. LOVENOX [Suspect]
     Indication: ATRIAL FIBRILLATION
     Dosage: 80 MG Q12H SQ
     Route: 058
     Dates: start: 20060425, end: 20060501
  3. MOBIC [Concomitant]
  4. ALLOPURINOL [Concomitant]
  5. KLOR-CON [Concomitant]
  6. NORVASC [Concomitant]
  7. MAXZIDE [Concomitant]
  8. L-THYROXINE [Concomitant]
  9. METOPROLOL TARTRATE [Concomitant]
  10. DETROL [Concomitant]
  11. ALLOPURINOL [Concomitant]
  12. DIGOXIN [Concomitant]
  13. MAGNESIUM OXIDE [Concomitant]
  14. METOPROLOL TARTRATE [Concomitant]
  15. DILTIAZEM HCL [Concomitant]
  16. FUROSEMIDE [Concomitant]
  17. DILTIAZEM CD [Concomitant]
  18. DILITAZEM CD [Concomitant]

REACTIONS (13)
  - ABDOMINAL HAEMATOMA [None]
  - ABDOMINAL PAIN [None]
  - ABDOMINAL WALL DISORDER [None]
  - ANURIA [None]
  - BLADDER DISORDER [None]
  - BRADYCARDIA [None]
  - HAEMATOMA [None]
  - OBSTRUCTION [None]
  - PELVIC HAEMATOMA [None]
  - PELVIC HAEMORRHAGE [None]
  - PUPIL FIXED [None]
  - REFUSAL OF TREATMENT BY RELATIVE [None]
  - RETROPERITONEAL HAEMATOMA [None]
